FAERS Safety Report 4703649-1 (Version None)
Quarter: 2005Q2

REPORT INFORMATION
  Report Type: 
  Country: None (occurrence: None)
  Receive Date: 20050208
  Receipt Date: 20050208
  Transmission Date: 20051028
  Serious: No
  Sender: FDA-Public Use
  Company Number: None

PATIENT
  Sex: Female
  Weight: 62.5964 kg

DRUGS (1)
  1. WARFARIN SODIUM [Suspect]
     Indication: ANTICOAGULANT THERAPY
     Dosage: 5MG QD PO  CHANGED TO WARFARIN 2-4-04 CHANGED TO COUMADIN 4-6-04
     Route: 048
     Dates: start: 20040223

REACTIONS (2)
  - COAGULOPATHY [None]
  - THERAPEUTIC RESPONSE UNEXPECTED WITH DRUG SUBSTITUTION [None]
